FAERS Safety Report 7226860-7 (Version None)
Quarter: 2011Q1

REPORT INFORMATION
  Report Type: 
  Country: None (occurrence: None)
  Receive Date: 20110114
  Receipt Date: 20101216
  Transmission Date: 20110831
  Serious: Yes (Other)
  Sender: FDA-Public Use
  Company Number: US-BAYER-201017910NA

PATIENT
  Sex: Female

DRUGS (24)
  1. KETOROLAC TROMETHAMINE [Concomitant]
     Dosage: UNK
     Dates: start: 20010101
  2. YASMIN [Suspect]
     Indication: CONTRACEPTION
     Route: 048
     Dates: start: 20050418, end: 20090920
  3. CEPHALEXIN [Concomitant]
     Dosage: UNK
     Dates: start: 20000101, end: 20100101
  4. MINOCYCLINE HCL [Concomitant]
     Dosage: UNK
     Dates: start: 20000101, end: 20100101
  5. REGLAN [Concomitant]
     Dosage: UNK
     Dates: start: 20050101, end: 20080101
  6. MERIDIA [Concomitant]
  7. TOPAMAX [Concomitant]
  8. ZANTAC [Concomitant]
     Dosage: UNK
     Dates: start: 20050101, end: 20080101
  9. YAZ [Suspect]
     Indication: PRODUCT USED FOR UNKNOWN INDICATION
     Dosage: AS USED DOSE: UNK
     Route: 048
     Dates: start: 20050418, end: 20090920
  10. MEDROXYPROGESTERONE [Concomitant]
     Dosage: UNK
     Dates: start: 20070601
  11. BIAXIN [Concomitant]
     Dosage: UNK
     Dates: start: 20000101, end: 20100101
  12. PROMETRIUM [Concomitant]
     Dosage: UNK
     Dates: start: 20070723
  13. ACIPHEX [Concomitant]
     Dosage: UNK
     Dates: start: 20050101, end: 20080101
  14. CLINDAMYCIN [Concomitant]
     Dosage: UNK
     Dates: start: 20000101, end: 20100101
  15. ZITHROMAX [Concomitant]
     Dosage: UNK
     Dates: start: 20000101, end: 20100101
  16. IMITREX [Concomitant]
  17. PREVACID [Concomitant]
     Dosage: UNK
     Dates: start: 20050101, end: 20080101
  18. OCELLA [Suspect]
     Indication: PRODUCT USED FOR UNKNOWN INDICATION
     Dosage: AS USED DOSE: UNK
     Route: 065
     Dates: start: 20050418, end: 20090920
  19. BELLADONNA EXTRACT W/PHENOBARBITONE [Concomitant]
  20. LEVAQUIN [Concomitant]
     Dosage: UNK
     Dates: start: 20000101, end: 20100101
  21. AVELOX [Concomitant]
     Dosage: UNK
     Dates: start: 20000101, end: 20100101
  22. NEXIUM [Concomitant]
     Dosage: UNK
     Dates: start: 20050101, end: 20080101
  23. AXID [Concomitant]
     Dosage: UNK
     Dates: start: 20050101, end: 20080101
  24. ZEGERID [Concomitant]
     Dosage: UNK
     Dates: start: 20050101, end: 20080101

REACTIONS (1)
  - CHOLECYSTECTOMY [None]
